FAERS Safety Report 17215785 (Version 2)
Quarter: 2020Q1

REPORT INFORMATION
  Report Type: Report from Study
  Country: JP (occurrence: JP)
  Receive Date: 20191230
  Receipt Date: 20200107
  Transmission Date: 20200409
  Serious: Yes (Death, Hospitalization)
  Sender: FDA-Public Use
  Company Number: JP-CELGENEUS-JPN-20191209835

PATIENT
  Age: 81 Year
  Sex: Male

DRUGS (38)
  1. PALONOSETRON HYDROCHLORIDE. [Concomitant]
     Active Substance: PALONOSETRON HYDROCHLORIDE
     Indication: PROPHYLAXIS OF NAUSEA AND VOMITING
     Dosage: .75 MILLIGRAM
     Route: 065
     Dates: start: 20190313, end: 20190313
  2. PALONOSETRON HYDROCHLORIDE. [Concomitant]
     Active Substance: PALONOSETRON HYDROCHLORIDE
     Dosage: .75 MILLIGRAM
     Route: 065
     Dates: start: 20190410, end: 20190410
  3. SODIUM/POTASSIUM/ASCORBIC ACID [Concomitant]
     Indication: COLONOSCOPY
     Dosage: 1 DOSAGE FORMS
     Route: 065
     Dates: start: 20190506, end: 20190506
  4. VIDAZA [Suspect]
     Active Substance: AZACITIDINE
     Dosage: 100 MILLIGRAM
     Route: 065
     Dates: start: 20190410, end: 20190418
  5. KALLIDINOGENASE [Concomitant]
     Active Substance: KALLIDINOGENASE
     Indication: MYOCARDIAL ISCHAEMIA
     Route: 065
  6. SOLDEM 3A [Concomitant]
     Active Substance: CARBOHYDRATES\POTASSIUM CHLORIDE\SODIUM CHLORIDE\SODIUM LACTATE
     Indication: URINARY TRACT INFECTION
     Dosage: 500 MILLILITER
     Route: 065
     Dates: start: 20190315, end: 20190318
  7. MEROPENEM HYDRATE [Concomitant]
     Active Substance: MEROPENEM
     Dosage: 1 GRAM
     Route: 065
     Dates: start: 20190502, end: 20190502
  8. BFLUID [Concomitant]
     Active Substance: AMINO ACIDS\DEXTROSE\ELECTROLYTES NOS\VITAMINS
     Dosage: 500 MILLILITER
     Route: 065
     Dates: start: 20190430
  9. SODIUM PICOSULFATE HYDRATE [Concomitant]
     Active Substance: SODIUM PICOSULFATE
     Indication: COLONOSCOPY
     Dosage: 75 MILLIGRAM
     Route: 065
     Dates: start: 20190506, end: 20190506
  10. NIFEDIPINE. [Concomitant]
     Active Substance: NIFEDIPINE
     Indication: HYPERTENSION
     Dosage: 40 MILLIGRAM
     Route: 065
     Dates: end: 20190423
  11. NIFEDIPINE. [Concomitant]
     Active Substance: NIFEDIPINE
     Dosage: 20 MILLIGRAM
     Route: 065
     Dates: start: 20190424, end: 20190507
  12. SOLDEM 3A [Concomitant]
     Active Substance: CARBOHYDRATES\POTASSIUM CHLORIDE\SODIUM CHLORIDE\SODIUM LACTATE
     Dosage: 500 MILLILITER
     Route: 065
     Dates: start: 20190424, end: 20190426
  13. DISTIGMINE BROMIDE [Concomitant]
     Active Substance: DISTIGMINE BROMIDE
     Indication: BENIGN PROSTATIC HYPERPLASIA
     Dosage: 5 MILLIGRAM
     Route: 065
     Dates: start: 20190315, end: 20190423
  14. LEVOFLOXACIN HEMIHYDRATE [Concomitant]
     Active Substance: LEVOFLOXACIN
     Dosage: 500 MILLIGRAM
     Route: 065
     Dates: start: 20190417, end: 20190423
  15. DIMETHYL ISOPROPYLAZULENE [Concomitant]
     Indication: PROCTALGIA
     Dosage: 1 DOSAGE FORMS
     Route: 065
     Dates: start: 20190419
  16. BFLUID [Concomitant]
     Active Substance: AMINO ACIDS\DEXTROSE\ELECTROLYTES NOS\VITAMINS
     Dosage: 1000 MILLILITER
     Route: 065
     Dates: start: 20190427, end: 20190429
  17. CIMETIDINE [Concomitant]
     Active Substance: CIMETIDINE
     Indication: GASTRITIS
     Dosage: 200 MILLIGRAM
     Route: 065
  18. MEROPENEM HYDRATE [Concomitant]
     Active Substance: MEROPENEM
     Dosage: 3 GRAM
     Route: 065
     Dates: start: 20190502, end: 20190502
  19. MEROPENEM HYDRATE [Concomitant]
     Active Substance: MEROPENEM
     Dosage: 3 GRAM
     Route: 065
     Dates: start: 20190506, end: 20190517
  20. SOLULACT [Concomitant]
     Indication: DEHYDRATION
     Dosage: 1000 MILLILITER
     Route: 065
     Dates: start: 20190507
  21. VIDAZA [Suspect]
     Active Substance: AZACITIDINE
     Dosage: 100 MILLIGRAM
     Route: 065
     Dates: start: 20190318, end: 20190321
  22. NAFTOPIDIL [Concomitant]
     Active Substance: NAFTOPIDIL
     Indication: BENIGN PROSTATIC HYPERPLASIA
     Dosage: 75 MILLIGRAM
     Route: 065
  23. ISOSORBIDE DINITRATE. [Concomitant]
     Active Substance: ISOSORBIDE DINITRATE
     Indication: HYPERTENSION
     Dosage: 40 MILLIGRAM
     Route: 065
  24. SOLDEM 3A [Concomitant]
     Active Substance: CARBOHYDRATES\POTASSIUM CHLORIDE\SODIUM CHLORIDE\SODIUM LACTATE
     Dosage: 500 MILLILITER
     Route: 065
     Dates: start: 20190430, end: 20190501
  25. LEVOFLOXACIN HEMIHYDRATE [Concomitant]
     Active Substance: LEVOFLOXACIN
     Dosage: 500 MILLIGRAM
     Route: 065
     Dates: start: 20190503
  26. BFLUID [Concomitant]
     Active Substance: AMINO ACIDS\DEXTROSE\ELECTROLYTES NOS\VITAMINS
     Indication: URINARY TRACT INFECTION
     Dosage: 500 MILLILITER
     Route: 065
     Dates: start: 20190424, end: 20190426
  27. MECOBALAMIN [Concomitant]
     Active Substance: METHYLCOBALAMIN
     Indication: NEUROPATHY PERIPHERAL
     Dosage: 1500 MILLIGRAM
     Route: 065
  28. CLOSTRIDIUM BUTYRICUM [Concomitant]
     Active Substance: CLOSTRIDIUM BUTYRICUM SPORES STRAIN M-55
     Indication: DYSBIOSIS
     Dosage: 2 DOSAGE FORMS
     Route: 065
     Dates: start: 20190310, end: 20190424
  29. CLOSTRIDIUM BUTYRICUM [Concomitant]
     Active Substance: CLOSTRIDIUM BUTYRICUM SPORES STRAIN M-55
     Dosage: 3 DOSAGE FORMS
     Route: 065
     Dates: start: 20190425
  30. CEFEPIME [Concomitant]
     Active Substance: CEFEPIME HYDROCHLORIDE
     Indication: URINARY TRACT INFECTION
     Dosage: 4 GRAM
     Route: 065
     Dates: start: 20190419, end: 20190423
  31. ACETAMINOPHEN. [Concomitant]
     Active Substance: ACETAMINOPHEN
     Indication: PROCTALGIA
     Dosage: 400 MILLIGRAM
     Route: 065
     Dates: start: 20190420
  32. ACETAMINOPHEN. [Concomitant]
     Active Substance: ACETAMINOPHEN
     Route: 065
     Dates: start: 20190506
  33. MEROPENEM HYDRATE [Concomitant]
     Active Substance: MEROPENEM
     Indication: URINARY TRACT INFECTION
     Dosage: 3 GRAM
     Route: 065
     Dates: start: 20190424, end: 20190501
  34. TRIBENOSIDE LIDOCAINE [Concomitant]
     Active Substance: LIDOCAINE\TRIBENOSIDE
     Indication: RECTAL STENOSIS
     Dosage: 2 IU (INTERNATIONAL UNIT)
     Route: 065
     Dates: start: 20190426
  35. VIDAZA [Suspect]
     Active Substance: AZACITIDINE
     Indication: MYELODYSPLASTIC SYNDROME
     Dosage: 100 MILLIGRAM
     Route: 065
     Dates: start: 20190313, end: 20190315
  36. CARVEDILOL. [Concomitant]
     Active Substance: CARVEDILOL
     Indication: MYOCARDIAL ISCHAEMIA
     Dosage: 10 MILLIGRAM
     Route: 065
  37. LEVOFLOXACIN HEMIHYDRATE [Concomitant]
     Active Substance: LEVOFLOXACIN
     Indication: CYSTITIS
     Dosage: 500 MILLIGRAM
     Route: 065
     Dates: start: 20190403, end: 20190407
  38. DIMETHICONE. [Concomitant]
     Active Substance: DIMETHICONE
     Indication: COLONOSCOPY
     Dosage: 20 MILLIGRAM
     Route: 065
     Dates: start: 20190506, end: 20190506

REACTIONS (2)
  - Death [Fatal]
  - Urinary tract infection [Not Recovered/Not Resolved]

NARRATIVE: CASE EVENT DATE: 20190419
